FAERS Safety Report 14847896 (Version 1)
Quarter: 2018Q2

REPORT INFORMATION
  Report Type: Spontaneous
  Country: US (occurrence: US)
  Receive Date: 20180504
  Receipt Date: 20180504
  Transmission Date: 20180711
  Serious: No
  Sender: FDA-Public Use
  Company Number: US-BAYER-2018-086276

PATIENT
  Age: 77 Year
  Sex: Female
  Weight: 82 kg

DRUGS (6)
  1. ASPIRIN ACTIV [Concomitant]
     Dosage: UNK
  2. PRIMIDONE. [Concomitant]
     Active Substance: PRIMIDONE
     Dosage: 2 DF, UNK
  3. TROSPIUM [Concomitant]
     Active Substance: TROSPIUM
     Dosage: 20 MG, QD
  4. ALEVE [Suspect]
     Active Substance: NAPROXEN SODIUM
     Indication: PAIN
     Dosage: 1 DF, UNK
     Route: 048
  5. LISINOPRIL. [Concomitant]
     Active Substance: LISINOPRIL
     Dosage: UNK
  6. GLIMEPIRIDE. [Concomitant]
     Active Substance: GLIMEPIRIDE
     Dosage: UNK

REACTIONS (2)
  - Constipation [Recovered/Resolved]
  - Constipation [Recovered/Resolved]

NARRATIVE: CASE EVENT DATE: 20180503
